FAERS Safety Report 15188262 (Version 1)
Quarter: 2018Q3

REPORT INFORMATION
  Report Type: Spontaneous
  Country: US (occurrence: US)
  Receive Date: 20180724
  Receipt Date: 20180724
  Transmission Date: 20181010
  Serious: No
  Sender: FDA-Public Use
  Company Number: US-TEVA-2018-US-932276

PATIENT
  Sex: Female

DRUGS (1)
  1. AUSTEDO [Suspect]
     Active Substance: DEUTETRABENAZINE
     Indication: TARDIVE DYSKINESIA
     Dosage: 27 MILLIGRAM DAILY; 6 MG TABLET + 9 MG TABLET IN THE MORNING AND 12 MG TABLET AT NIGHT
     Route: 065
     Dates: start: 201802

REACTIONS (1)
  - Muscle spasms [Unknown]
